FAERS Safety Report 24830398 (Version 1)
Quarter: 2025Q1

REPORT INFORMATION
  Report Type: Report from Study
  Country: CA (occurrence: CA)
  Receive Date: 20250110
  Receipt Date: 20250110
  Transmission Date: 20250408
  Serious: Yes (Other)
  Sender: SAMSUNG BIOEPIS
  Company Number: CA-SAMSUNG BIOEPIS-SB-2025-00712

PATIENT
  Sex: Female

DRUGS (2)
  1. RENFLEXIS [Suspect]
     Active Substance: INFLIXIMAB-ABDA
     Indication: Crohn^s disease
     Route: 042
     Dates: start: 20241122
  2. RENFLEXIS [Suspect]
     Active Substance: INFLIXIMAB-ABDA
     Indication: Ankylosing spondylitis

REACTIONS (9)
  - Blood pressure increased [Unknown]
  - Gastrointestinal disorder [Unknown]
  - Tooth abscess [Unknown]
  - Eczema [Unknown]
  - Skin exfoliation [Unknown]
  - Headache [Unknown]
  - Rash [Unknown]
  - Therapeutic product effect decreased [Unknown]
  - Frequent bowel movements [Unknown]
